FAERS Safety Report 24167870 (Version 1)
Quarter: 2024Q3

REPORT INFORMATION
  Report Type: Spontaneous
  Country: US (occurrence: None)
  Receive Date: 20240801
  Receipt Date: 20240801
  Transmission Date: 20241016
  Serious: No
  Sender: Public
  Company Number: None

PATIENT
  Age: 56 Year
  Sex: Female

DRUGS (1)
  1. BENLYSTA [Suspect]
     Active Substance: BELIMUMAB
     Indication: Systemic lupus erythematosus
     Dosage: OTHER FREQUENCY : EVERY WEEK;?
     Route: 058

REACTIONS (5)
  - Diarrhoea [None]
  - Abdominal pain [None]
  - Drug ineffective [None]
  - Quality of life decreased [None]
  - Therapeutic product effect decreased [None]

NARRATIVE: CASE EVENT DATE: 20240625
